FAERS Safety Report 7162523-4 (Version None)
Quarter: 2010Q4

REPORT INFORMATION
  Report Type: 
  Country: None (occurrence: None)
  Receive Date: 20101202
  Receipt Date: 20101116
  Transmission Date: 20110411
  Serious: Yes (Other)
  Sender: FDA-Public Use
  Company Number: 201032785NA

PATIENT
  Age: 30 Year
  Sex: Female
  Weight: 53.5244 kg

DRUGS (6)
  1. YAZ [Suspect]
     Indication: CONTRACEPTION
     Dosage: ORAL
     Route: 048
     Dates: start: 20070601, end: 20080601
  2. NAPROXEN SODIUM [Concomitant]
  3. ADVIL [Concomitant]
  4. ACETAMINOPHEN [Concomitant]
  5. NEXIUM [Concomitant]
  6. PREVACID [Concomitant]

REACTIONS (7)
  - ABDOMINAL PAIN [None]
  - DYSKINESIA [None]
  - DYSPEPSIA [None]
  - GALLBLADDER DISORDER [None]
  - GASTROOESOPHAGEAL REFLUX DISEASE [None]
  - NAUSEA [None]
  - PAIN [None]
